FAERS Safety Report 10009133 (Version 2)
Quarter: 2014Q1

REPORT INFORMATION
  Report Type: Spontaneous
  Country: US (occurrence: US)
  Receive Date: 20140313
  Receipt Date: 20140313
  Transmission Date: 20141002
  Serious: No
  Sender: FDA-Public Use
  Company Number: US-GILEAD-2013-0073664

PATIENT
  Sex: Female

DRUGS (4)
  1. LETAIRIS [Suspect]
     Indication: PULMONARY HYPERTENSION
     Dosage: 10 MG, QD
     Dates: start: 20110302
  2. LETAIRIS [Suspect]
     Indication: SARCOIDOSIS
  3. LETAIRIS [Suspect]
     Indication: SCLERODERMA
  4. SILDENAFIL [Concomitant]

REACTIONS (2)
  - Malaise [Recovered/Resolved]
  - Gastroenteritis viral [Unknown]
